FAERS Safety Report 7271504-1 (Version None)
Quarter: 2011Q1

REPORT INFORMATION
  Report Type: 
  Country: None (occurrence: None)
  Receive Date: 20110203
  Receipt Date: 20101129
  Transmission Date: 20110831
  Serious: Yes (Other)
  Sender: FDA-Public Use
  Company Number: US-BAYER-201041755NA

PATIENT
  Sex: Female

DRUGS (4)
  1. YASMIN [Suspect]
     Indication: DYSMENORRHOEA
     Dosage: UNK UNK, UNK
     Route: 048
     Dates: start: 20050601, end: 20050801
  2. YAZ [Suspect]
     Dosage: UNK UNK, UNK
     Route: 048
     Dates: start: 20050601, end: 20050801
  3. YASMIN [Suspect]
     Indication: ACNE
     Dosage: UNK
     Dates: start: 20051101, end: 20090101
  4. YASMIN [Suspect]
     Indication: MENSTRUAL DISORDER

REACTIONS (7)
  - CONVULSION [None]
  - ANXIETY [None]
  - PAIN [None]
  - MUSCULAR WEAKNESS [None]
  - STRESS [None]
  - CEREBROVASCULAR ACCIDENT [None]
  - FATIGUE [None]
